FAERS Safety Report 8551813-6 (Version None)
Quarter: 2012Q3

REPORT INFORMATION
  Report Type: 
  Country: None (occurrence: None)
  Receive Date: 20120730
  Receipt Date: 20120719
  Transmission Date: 20120928
  Serious: Yes (Other)
  Sender: FDA-Public Use
  Company Number: CN-BAXTER-2012BAX012441

PATIENT
  Sex: Female
  Weight: 62 kg

DRUGS (2)
  1. MANNITOL [Suspect]
     Route: 041
     Dates: start: 20110704, end: 20110706
  2. SODIUM CHLORIDE [Suspect]
     Route: 065
     Dates: start: 20110704, end: 20110706

REACTIONS (2)
  - HYPERPYREXIA [None]
  - HAEMATURIA [None]
